FAERS Safety Report 7654295-1 (Version None)
Quarter: 2011Q3

REPORT INFORMATION
  Report Type: 
  Country: None (occurrence: None)
  Receive Date: 20110728
  Receipt Date: 20110714
  Transmission Date: 20111222
  Serious: Yes (Other)
  Sender: FDA-Public Use
  Company Number: GB-1187129

PATIENT
  Age: 51 Year
  Sex: Female

DRUGS (6)
  1. RITONAVIR [Suspect]
     Indication: HIV INFECTION
     Dosage: (100 MG QD)
  2. BETAMETHASONE [Suspect]
     Indication: CYTOMEGALOVIRUS CHORIORETINITIS
     Dosage: (QD OPHTHALMIC)
     Route: 047
  3. ATAZANAVIR [Concomitant]
  4. DEXAMETHASONE [Suspect]
     Indication: CYTOMEGALOVIRUS CHORIORETINITIS
     Dosage: (6 TIMES PER DAY OPHTHALMIC)
     Route: 047
  5. TENOFOVIR DISOPROXIL FUMARATE [Concomitant]
  6. EMTRICITABINE [Concomitant]

REACTIONS (7)
  - BLOOD CORTICOTROPHIN DECREASED [None]
  - ACTH STIMULATION TEST ABNORMAL [None]
  - WEIGHT INCREASED [None]
  - DRUG INTERACTION [None]
  - CUSHING'S SYNDROME [None]
  - ADRENAL SUPPRESSION [None]
  - OSTEONECROSIS [None]
